FAERS Safety Report 15695156 (Version 1)
Quarter: 2018Q4

REPORT INFORMATION
  Report Type: Spontaneous
  Country: US (occurrence: US)
  Receive Date: 20181206
  Receipt Date: 20181206
  Transmission Date: 20190205
  Serious: No
  Sender: FDA-Public Use
  Company Number: US-ENDO PHARMACEUTICALS INC-2018-038177

PATIENT
  Age: 44 Year
  Sex: Male

DRUGS (4)
  1. XIAFLEX [Suspect]
     Active Substance: COLLAGENASE CLOSTRIDIUM HISTOLYTICUM
     Dosage: CYCLE 2, FIRST INJECTION
     Route: 026
     Dates: start: 20180509
  2. XIAFLEX [Suspect]
     Active Substance: COLLAGENASE CLOSTRIDIUM HISTOLYTICUM
     Dosage: CYCLE 1, FIRST INJECTION
     Route: 026
     Dates: start: 20180314
  3. XIAFLEX [Suspect]
     Active Substance: COLLAGENASE CLOSTRIDIUM HISTOLYTICUM
     Indication: PEYRONIE^S DISEASE
     Dosage: CYCLE 2, SECOND INJECTION
     Route: 026
     Dates: start: 20180515
  4. XIAFLEX [Suspect]
     Active Substance: COLLAGENASE CLOSTRIDIUM HISTOLYTICUM
     Dosage: CYCLE 1, SECOND INJECTION
     Route: 026
     Dates: start: 20180320

REACTIONS (3)
  - Injection site swelling [Unknown]
  - Inappropriate schedule of product administration [Unknown]
  - Injection site pruritus [Unknown]

NARRATIVE: CASE EVENT DATE: 201803
